FAERS Safety Report 8496037-6 (Version None)
Quarter: 2012Q3

REPORT INFORMATION
  Report Type: 
  Country: None (occurrence: None)
  Receive Date: 20120709
  Receipt Date: 20120702
  Transmission Date: 20120928
  Serious: Yes (Other)
  Sender: FDA-Public Use
  Company Number: AU-ROCHE-GNE278817

PATIENT
  Sex: Female

DRUGS (3)
  1. LUCENTIS [Suspect]
     Dosage: IN LEFT EYE
     Route: 050
     Dates: start: 20120501
  2. LUCENTIS [Suspect]
     Dosage: IN RIGHT EYE
     Route: 050
     Dates: start: 20110101
  3. LUCENTIS [Suspect]
     Indication: AGE-RELATED MACULAR DEGENERATION
     Dosage: 0.05 ML, 1/MONTH LEFT EYE
     Route: 050
     Dates: start: 20080601

REACTIONS (3)
  - VISUAL ACUITY REDUCED [None]
  - RETINAL HAEMORRHAGE [None]
  - AGE-RELATED MACULAR DEGENERATION [None]
